FAERS Safety Report 6628894-X (Version None)
Quarter: 2010Q1

REPORT INFORMATION
  Report Type: 
  Country: None (occurrence: None)
  Receive Date: 20100225
  Receipt Date: 20090514
  Transmission Date: 20100710
  Serious: Yes (Other)
  Sender: FDA-Public Use
  Company Number: 632808

PATIENT
  Age: 21 Year
  Sex: Male
  Weight: 83.9 kg

DRUGS (7)
  1. ACCUTANE [Suspect]
     Indication: ACNE
     Dosage: 40 MG 2 PER 1 DAY
     Dates: start: 20011112, end: 20020524
  2. ALBUTEROL [Concomitant]
  3. SINGULAIR [Concomitant]
  4. MINOCIN [Concomitant]
  5. BENZACLIN (BENZOYL PEROXIDE/CLINDAMYCIN) [Concomitant]
  6. BLISTEX (ALLANTOIN/AMINOBENZOIC ACID/CAMPHOR/MENTHOL/OXYBENZONE/PHENOL [Concomitant]
  7. CLODERM (CLOCORTOLONE PIVALATE) [Concomitant]

REACTIONS (3)
  - CROHN'S DISEASE [None]
  - DERMATITIS [None]
  - INFLAMMATORY BOWEL DISEASE [None]
